FAERS Safety Report 21178159 (Version 1)
Quarter: 2022Q3

REPORT INFORMATION
  Report Type: Spontaneous
  Country: US (occurrence: None)
  Receive Date: 20220804
  Receipt Date: 20220804
  Transmission Date: 20221027
  Serious: Yes (Hospitalization)
  Sender: FDA-Public Use
  Company Number: None

PATIENT
  Sex: Female
  Weight: 67.13 kg

DRUGS (26)
  1. FLUOROURACIL [Suspect]
     Active Substance: FLUOROURACIL
     Indication: Colon cancer
     Dosage: OTHER FREQUENCY : Q14D;?
     Route: 042
  2. OXALIPLATIN [Suspect]
     Active Substance: OXALIPLATIN
     Indication: Colon cancer
     Dosage: OTHER FREQUENCY : Q14D;?
     Route: 042
  3. LEUCOVORIN [Concomitant]
     Active Substance: LEUCOVORIN
  4. ONDANSETRON [Concomitant]
  5. DEXAMETHASONE [Concomitant]
  6. AMLODIPINE BESYLATE [Concomitant]
  7. ATENOLOL [Concomitant]
     Active Substance: ATENOLOL
  8. VITAMIN D3 [Concomitant]
  9. HYDRALAZINE [Concomitant]
  10. METOPROLOL TARTRATE [Concomitant]
  11. PRAVASTATIN [Concomitant]
  12. COUMADIN [Concomitant]
  13. ANASTROZOLE [Concomitant]
  14. EXCEDRIN [Concomitant]
  15. LOTENSIN [Concomitant]
  16. VITAMIN D [Concomitant]
  17. FERROUS GLUCONATE [Concomitant]
  18. LASIX [Concomitant]
  19. HYDRALAZINE [Concomitant]
  20. METOPROLOL TARTRATE [Concomitant]
  21. CENTRUM [Concomitant]
  22. POTASSIUM CHLORIDE [Concomitant]
  23. PRAVASTATIN SODIUM [Concomitant]
  24. PROCHLORPERAZINE MALEATE [Concomitant]
  25. OCEAN [Concomitant]
  26. WARFARIN SODIUM [Concomitant]

REACTIONS (1)
  - Hospitalisation [None]
